FAERS Safety Report 4736389-3 (Version None)
Quarter: 2005Q3

REPORT INFORMATION
  Report Type: 
  Country: None (occurrence: None)
  Receive Date: 20050808
  Receipt Date: 20050726
  Transmission Date: 20060218
  Serious: Yes (Death, Hospitalization)
  Sender: FDA-Public Use
  Company Number: JP-JNJFOC-20050400315

PATIENT
  Sex: Female
  Weight: 43 kg

DRUGS (23)
  1. REMICADE [Suspect]
     Route: 042
  2. REMICADE [Suspect]
     Route: 042
  3. REMICADE [Suspect]
     Route: 042
  4. REMICADE [Suspect]
     Route: 042
  5. REMICADE [Suspect]
     Indication: RHEUMATOID ARTHRITIS
     Route: 042
  6. PREDONINE [Suspect]
  7. PREDONINE [Suspect]
  8. PREDONINE [Suspect]
  9. PREDONINE [Suspect]
  10. PREDONINE [Suspect]
     Indication: RHEUMATOID ARTHRITIS
  11. PROGRAF [Suspect]
     Indication: RHEUMATOID ARTHRITIS
  12. METHOTREXATE [Concomitant]
     Route: 048
  13. METHOTREXATE [Concomitant]
     Route: 048
  14. METHOTREXATE [Concomitant]
     Indication: RHEUMATOID ARTHRITIS
     Route: 048
  15. RHEUMATREX [Concomitant]
     Indication: RHEUMATOID ARTHRITIS
     Route: 048
  16. VOLTAREN [Concomitant]
     Indication: RHEUMATOID ARTHRITIS
     Route: 048
  17. KETOPROFEN [Concomitant]
     Indication: RHEUMATOID ARTHRITIS
     Route: 048
  18. CYTOTEC [Concomitant]
     Route: 048
  19. FERROMIA [Concomitant]
     Route: 048
  20. TAKEPRON [Concomitant]
     Indication: GASTRIC ULCER
     Route: 048
  21. BONALON [Concomitant]
     Indication: OSTEOPOROSIS
     Route: 048
  22. HYPEN [Concomitant]
     Indication: RHEUMATOID ARTHRITIS
  23. HALCION [Concomitant]

REACTIONS (5)
  - ABSCESS [None]
  - DRUG INEFFECTIVE [None]
  - PERICARDITIS [None]
  - RIB FRACTURE [None]
  - TUBERCULOSIS [None]
